FAERS Safety Report 17942975 (Version 1)
Quarter: 2020Q2

REPORT INFORMATION
  Report Type: Spontaneous
  Country: PK (occurrence: PK)
  Receive Date: 20200625
  Receipt Date: 20200625
  Transmission Date: 20200714
  Serious: Yes (Death, Other)
  Sender: FDA-Public Use
  Company Number: PK-ROCHE-2627675

PATIENT
  Age: 38 Year
  Sex: Male

DRUGS (1)
  1. ACTEMRA [Suspect]
     Active Substance: TOCILIZUMAB
     Indication: COVID-19
     Dosage: FREQUENCY STAT
     Route: 042
     Dates: start: 20200616, end: 20200616

REACTIONS (6)
  - Chest pain [Fatal]
  - Diarrhoea [Fatal]
  - Off label use [Unknown]
  - Oxygen saturation decreased [Fatal]
  - Intentional product use issue [Unknown]
  - Cardiac arrest [Fatal]

NARRATIVE: CASE EVENT DATE: 20200616
